FAERS Safety Report 11458806 (Version 2)
Quarter: 2015Q3

REPORT INFORMATION
  Report Type: Spontaneous
  Country: FR (occurrence: FR)
  Receive Date: 20150904
  Receipt Date: 20150918
  Transmission Date: 20151125
  Serious: Yes (Other)
  Sender: FDA-Public Use
  Company Number: FR-PFIZER INC-2015292897

PATIENT
  Age: 51 Year
  Sex: Female
  Weight: 72 kg

DRUGS (1)
  1. ESTRACYT [Suspect]
     Active Substance: ESTRAMUSTINE PHOSPHATE SODIUM
     Indication: BREAST CANCER METASTATIC
     Dosage: 140 MG, 4X/DAY
     Route: 048
     Dates: start: 20150402, end: 20150820

REACTIONS (3)
  - Product use issue [Not Recovered/Not Resolved]
  - Optic nerve disorder [Not Recovered/Not Resolved]
  - Meningioma [Not Recovered/Not Resolved]

NARRATIVE: CASE EVENT DATE: 20150803
